FAERS Safety Report 9266359 (Version 1)
Quarter: 2013Q2

REPORT INFORMATION
  Report Type: Spontaneous
  Country: GR (occurrence: GR)
  Receive Date: 20130502
  Receipt Date: 20130502
  Transmission Date: 20140414
  Serious: Yes (Other)
  Sender: FDA-Public Use
  Company Number: GR-BIOGENIDEC-2013BI038625

PATIENT
  Sex: Female

DRUGS (1)
  1. AVONEX [Suspect]
     Indication: EXPOSURE VIA FATHER

REACTIONS (1)
  - Brain malformation [Unknown]
